FAERS Safety Report 7790492-2 (Version None)
Quarter: 2011Q3

REPORT INFORMATION
  Report Type: 
  Country: None (occurrence: None)
  Receive Date: 20110930
  Receipt Date: 20110921
  Transmission Date: 20111222
  Serious: Yes (Hospitalization, Other)
  Sender: FDA-Public Use
  Company Number: PHHY2011CA61066

PATIENT
  Sex: Male

DRUGS (1)
  1. SANDOSTATIN LAR [Suspect]
     Indication: ADENOCARCINOMA PANCREAS
     Dosage: 30 MG EVERY 04 WEEKS
     Route: 030
     Dates: start: 20110509, end: 20110901

REACTIONS (6)
  - URINARY TRACT INFECTION [None]
  - HAEMOGLOBIN DECREASED [None]
  - PULMONARY THROMBOSIS [None]
  - TERMINAL STATE [None]
  - FATIGUE [None]
  - LOSS OF CONSCIOUSNESS [None]
